FAERS Safety Report 9402971 (Version 1)
Quarter: 2013Q3

REPORT INFORMATION
  Report Type: Spontaneous
  Country: US (occurrence: US)
  Receive Date: 20130716
  Receipt Date: 20130716
  Transmission Date: 20140515
  Serious: Yes (Other)
  Sender: FDA-Public Use
  Company Number: US-JNJFOC-20130707861

PATIENT
  Sex: Female

DRUGS (2)
  1. UNSPECIFIED FENTANYL TRANSDERMA L SYSTEM [Suspect]
     Indication: PRODUCT USED FOR UNKNOWN INDICATION
     Route: 062
     Dates: start: 201205, end: 2012
  2. UNSPECIFIED FENTANYL TRANSDERMA L SYSTEM [Suspect]
     Indication: PRODUCT USED FOR UNKNOWN INDICATION
     Route: 062
     Dates: end: 201306

REACTIONS (10)
  - Abnormal loss of weight [Not Recovered/Not Resolved]
  - Arthropathy [Not Recovered/Not Resolved]
  - Withdrawal syndrome [Recovered/Resolved]
  - Wrong technique in drug usage process [Unknown]
  - Fall [Recovered/Resolved]
  - Product quality issue [Unknown]
  - Drug ineffective [Recovered/Resolved]
  - Application site erosion [Recovered/Resolved]
  - Product adhesion issue [None]
  - Condition aggravated [None]
